FAERS Safety Report 5253464-8 (Version None)
Quarter: 2007Q1

REPORT INFORMATION
  Report Type: 
  Country: None (occurrence: None)
  Receive Date: 20070301
  Receipt Date: 20070219
  Transmission Date: 20070707
  Serious: No
  Sender: FDA-Public Use
  Company Number: US-ELI_LILLY_AND_COMPANY-US200701003427

PATIENT
  Age: 55 Year
  Sex: Female
  Weight: 75.283 kg

DRUGS (6)
  1. CYMBALTA [Suspect]
     Indication: NEUROPATHY
     Dosage: 60 MG, DAILY (1/D)
     Dates: start: 20060516
  2. CYMBALTA [Suspect]
     Dosage: 30 MG, UNK
     Route: 048
     Dates: start: 20060101, end: 20070123
  3. LIPITOR [Concomitant]
     Dosage: 80 MG, UNK
  4. METFORMIN HCL [Concomitant]
     Dosage: 750 MG, 2/D
  5. ACTOS /USA/ [Concomitant]
     Dosage: 30 MG, UNK
  6. AMARYL [Concomitant]
     Dosage: 4 MG, UNK

REACTIONS (4)
  - BLOOD ALBUMIN DECREASED [None]
  - BLOOD ALKALINE PHOSPHATASE INCREASED [None]
  - BLOOD MAGNESIUM INCREASED [None]
  - RASH PRURITIC [None]
